FAERS Safety Report 6853103-6 (Version None)
Quarter: 2010Q3

REPORT INFORMATION
  Report Type: 
  Country: None (occurrence: None)
  Receive Date: 20100717
  Receipt Date: 20071130
  Transmission Date: 20110219
  Serious: No
  Sender: FDA-Public Use
  Company Number: US-PFIZER INC-2007102333

PATIENT
  Sex: Male
  Weight: 70.5 kg

DRUGS (4)
  1. CHANTIX [Suspect]
     Indication: SMOKING CESSATION THERAPY
     Route: 048
     Dates: start: 20070901, end: 20071001
  2. AMLODIPINE BESYLATE AND BENAZEPRIL HCL [Concomitant]
  3. NIASPAN [Concomitant]
  4. ACETYLSALICYLIC ACID [Concomitant]

REACTIONS (8)
  - CONSTIPATION [None]
  - DECREASED APPETITE [None]
  - DYSGEUSIA [None]
  - FLATULENCE [None]
  - INSOMNIA [None]
  - MOOD ALTERED [None]
  - NAUSEA [None]
  - VOMITING [None]
